FAERS Safety Report 7556907-X (Version None)
Quarter: 2011Q2

REPORT INFORMATION
  Report Type: 
  Country: None (occurrence: None)
  Receive Date: 20110620
  Receipt Date: 20110606
  Transmission Date: 20111010
  Serious: Yes (Other)
  Sender: FDA-Public Use
  Company Number: PHHY2011DE49982

PATIENT
  Sex: Female
  Weight: 68 kg

DRUGS (2)
  1. TRASTUZUMAB [Concomitant]
     Dosage: UNK
     Dates: start: 20080201
  2. ZOMETA [Suspect]
     Indication: BONE DISORDER
     Dosage: 4 MG, EVERY 4 WEEKS
     Route: 042
     Dates: start: 20110106

REACTIONS (3)
  - GENERAL PHYSICAL HEALTH DETERIORATION [None]
  - FEMUR FRACTURE [None]
  - FALL [None]
